FAERS Safety Report 5830213-3 (Version None)
Quarter: 2008Q3

REPORT INFORMATION
  Report Type: 
  Country: None (occurrence: None)
  Receive Date: 20080801
  Receipt Date: 20080725
  Transmission Date: 20090109
  Serious: Yes (Hospitalization)
  Sender: FDA-Public Use
  Company Number: A0740564A

PATIENT
  Age: 61 Year
  Sex: Female

DRUGS (3)
  1. PAZOPANIB [Suspect]
     Indication: NEOPLASM MALIGNANT
     Dosage: 800MG PER DAY
     Route: 048
     Dates: start: 20080408
  2. PACLITAXEL [Suspect]
     Indication: NEOPLASM MALIGNANT
     Dosage: 50MGM2 WEEKLY
     Route: 042
     Dates: start: 20080407
  3. LAPATINIB [Suspect]
     Indication: NEOPLASM MALIGNANT
     Dosage: 1000MG PER DAY
     Route: 048
     Dates: start: 20080407

REACTIONS (5)
  - ALANINE AMINOTRANSFERASE INCREASED [None]
  - DEHYDRATION [None]
  - FATIGUE [None]
  - HEPATIC ENZYME INCREASED [None]
  - PYREXIA [None]
